FAERS Safety Report 18280138 (Version 7)
Quarter: 2020Q4

REPORT INFORMATION
  Report Type: Spontaneous
  Country: ID (occurrence: ID)
  Receive Date: 20200917
  Receipt Date: 20201202
  Transmission Date: 20210113
  Serious: Yes (Other)
  Sender: FDA-Public Use
  Company Number: ID-PFIZER INC-2020343628

PATIENT
  Age: 46 Year
  Sex: Female

DRUGS (9)
  1. IBRANCE [Suspect]
     Active Substance: PALBOCICLIB
     Indication: BREAST CANCER
     Dosage: 125 MG, CYCLIC (ONCE DAILY FIRST CYCLE, AFTER 3 WEEKS, IT WAS STOPPED FOR ABOUT 13 DAYS)
     Route: 048
     Dates: start: 20200625, end: 20200715
  2. AROMASIN [Suspect]
     Active Substance: EXEMESTANE
     Indication: BREAST CANCER FEMALE
     Dosage: 25 MG, 1X/DAY
     Route: 048
     Dates: start: 20200626, end: 20200709
  3. FEMARA [Concomitant]
     Active Substance: LETROZOLE
     Indication: BREAST CANCER
     Dosage: UNK
     Dates: start: 20200710
  4. IBRANCE [Suspect]
     Active Substance: PALBOCICLIB
     Dosage: 125 MG, 1X/DAY
     Route: 048
  5. AROMASIN [Suspect]
     Active Substance: EXEMESTANE
     Dosage: UNK
     Dates: start: 20200924
  6. IBRANCE [Suspect]
     Active Substance: PALBOCICLIB
     Dosage: 125 MG, CYCLIC (ONCE DAILY, SECOND CYCLE, AFTER 3 WEEKS, IT WAS STOPPED FOR ABOUT 11 DAYS)
     Route: 048
     Dates: start: 20200729, end: 20200818
  7. IBRANCE [Suspect]
     Active Substance: PALBOCICLIB
     Dosage: 125 MG, CYCLIC (ONCE DAILY)
     Route: 048
     Dates: start: 20200830, end: 20200919
  8. IBRANCE [Suspect]
     Active Substance: PALBOCICLIB
     Dosage: UNK
     Dates: start: 20201001, end: 20201021
  9. IBRANCE [Suspect]
     Active Substance: PALBOCICLIB
     Dosage: UNK
     Dates: start: 20200924

REACTIONS (14)
  - Pain in extremity [Unknown]
  - Bone pain [Recovered/Resolved]
  - Platelet count decreased [Recovered/Resolved]
  - Dry mouth [Recovering/Resolving]
  - Dry skin [Not Recovered/Not Resolved]
  - Pain [Unknown]
  - White blood cell count decreased [Recovered/Resolved]
  - Chest pain [Recovered/Resolved]
  - Fatigue [Unknown]
  - Pruritus [Not Recovered/Not Resolved]
  - Pain in extremity [Recovered/Resolved]
  - Wound [Unknown]
  - Musculoskeletal chest pain [Recovered/Resolved]
  - Axillary mass [Not Recovered/Not Resolved]

NARRATIVE: CASE EVENT DATE: 2020
